FAERS Safety Report 20917976 (Version 1)
Quarter: 2022Q2

REPORT INFORMATION
  Report Type: Report from Study
  Country: JP (occurrence: JP)
  Receive Date: 20220606
  Receipt Date: 20220606
  Transmission Date: 20220721
  Serious: Yes (Life-Threatening, Other)
  Sender: FDA-Public Use
  Company Number: JP-ASTELLAS-2020US006761

PATIENT
  Age: 71 Year
  Sex: Male

DRUGS (27)
  1. BENDAMUSTINE HYDROCHLORIDE [Suspect]
     Active Substance: BENDAMUSTINE HYDROCHLORIDE
     Indication: Diffuse large B-cell lymphoma
     Dosage: 151 MG, CYCLIC (CYCLE 1 DAY 2, 1 IN 3 WEEKS)
     Route: 042
     Dates: start: 20181220
  2. BENDAMUSTINE HYDROCHLORIDE [Suspect]
     Active Substance: BENDAMUSTINE HYDROCHLORIDE
     Dosage: 151 MG, CYCLIC (CYCLE 1 DAY 3)
     Route: 042
     Dates: start: 20181221
  3. BENDAMUSTINE HYDROCHLORIDE [Suspect]
     Active Substance: BENDAMUSTINE HYDROCHLORIDE
     Route: 042
     Dates: start: 20190109
  4. BENDAMUSTINE HYDROCHLORIDE [Suspect]
     Active Substance: BENDAMUSTINE HYDROCHLORIDE
     Route: 042
     Dates: start: 20190110
  5. BENDAMUSTINE HYDROCHLORIDE [Suspect]
     Active Substance: BENDAMUSTINE HYDROCHLORIDE
     Route: 042
     Dates: start: 20190130
  6. BENDAMUSTINE HYDROCHLORIDE [Suspect]
     Active Substance: BENDAMUSTINE HYDROCHLORIDE
     Dosage: 151 MG, CYCLIC (CYCLE 1 DAY 3)
     Route: 042
     Dates: start: 20190131
  7. POLATUZUMAB VEDOTIN [Suspect]
     Active Substance: POLATUZUMAB VEDOTIN
     Indication: Diffuse large B-cell lymphoma
     Dosage: 126 MG, EVERY 3 WEEKS (CYCLE 1 DAY 2)
     Route: 042
     Dates: start: 20181220
  8. POLATUZUMAB VEDOTIN [Suspect]
     Active Substance: POLATUZUMAB VEDOTIN
     Route: 042
     Dates: start: 20190109
  9. POLATUZUMAB VEDOTIN [Suspect]
     Active Substance: POLATUZUMAB VEDOTIN
     Route: 042
     Dates: start: 20190130
  10. RITUXIMAB [Suspect]
     Active Substance: RITUXIMAB
     Indication: Diffuse large B-cell lymphoma
     Dosage: 632 MG, EVERY 3 WEEKS (6 CYCLES) (CYCLE 1 DAY 1)
     Route: 042
     Dates: start: 20181219
  11. RITUXIMAB [Suspect]
     Active Substance: RITUXIMAB
     Route: 042
     Dates: start: 20190109
  12. RITUXIMAB [Suspect]
     Active Substance: RITUXIMAB
     Route: 042
     Dates: start: 20190130
  13. PREDONINE [Suspect]
     Active Substance: PREDNISOLONE
     Indication: Tumour pain
     Route: 041
     Dates: start: 20190125
  14. JANUVIA [Concomitant]
     Active Substance: SITAGLIPTIN PHOSPHATE
     Indication: Diabetes mellitus
     Dosage: 50 MILLIGRAM DAILY; 50 MG, ONCE DAILY (START OF DOSAGE DAY AFTER BREAKFAST, INVESTIGATIONAL DRUG PRI
     Route: 048
  15. NAFTOPIDIL [Concomitant]
     Active Substance: NAFTOPIDIL
     Indication: Dysuria
     Dosage: 25 MILLIGRAM DAILY; 25 MG, ONCE DAILY (START OF DOSAGE DAY AFTER BREAKFAST, INVESTIGATIONAL DRUG PRI
     Route: 048
  16. AMLODIPINE [Concomitant]
     Active Substance: AMLODIPINE BESYLATE
     Indication: Hypertension
     Dosage: 10 MILLIGRAM DAILY; 10 MG, ONCE DAILY (START OF DOSAGE DAY AFTER BREAKFAST, INVESTIGATIONAL DRUG PRI
     Route: 048
  17. VALSARTAN [Concomitant]
     Active Substance: VALSARTAN
     Indication: Hypertension
     Dosage: 80 MILLIGRAM DAILY; 80 MG, ONCE DAILY (START OF DOSAGE DAY AFTER BREAKFAST, INVESTIGATIONAL DRUG PRI
     Route: 048
  18. SULFAMETHOXAZOLE\TRIMETHOPRIM [Concomitant]
     Active Substance: SULFAMETHOXAZOLE\TRIMETHOPRIM
     Indication: Infection prophylaxis
     Dosage: .5 DOSAGE FORMS DAILY; 0.5 DF, ONCE DAILY (START OF DOSAGE DAY AFTER BREAKFAST, INVESTIGATIONAL DRUG
     Route: 048
  19. NEXIUM I.V. [Concomitant]
     Active Substance: ESOMEPRAZOLE SODIUM
     Indication: Gastric ulcer
     Dosage: 20 MILLIGRAM DAILY; 20 MG, ONCE DAILY (START OF DOSAGE DAY AFTER BREAKFAST, INVESTIGATIONAL DRUG PRI
     Route: 048
  20. ACYCLOVIR [Concomitant]
     Active Substance: ACYCLOVIR
     Indication: Infection prophylaxis
     Dosage: 200 MILLIGRAM DAILY; 200 MG, ONCE DAILY (AFTER THE BREAKFAST)
     Route: 048
     Dates: start: 20181228
  21. BIFIDOBACTERIUM SPP. [Concomitant]
     Active Substance: BIFIDOBACTERIUM SPP.
     Indication: Prophylaxis against diarrhoea
     Dosage: 1 DF, UNKNOWN FREQ. (AFTER EVERY MEAL)
     Route: 048
     Dates: start: 20190128
  22. AMPHOTERICIN B [Concomitant]
     Active Substance: AMPHOTERICIN B
     Indication: Oral candidiasis
     Dosage: 12 ML, UNKNOWN FREQ. (AFTER EVERY MEAL)
     Route: 048
     Dates: start: 20190206, end: 20190213
  23. FENTANYL CITRATE [Concomitant]
     Active Substance: FENTANYL CITRATE
     Indication: Tumour pain
     Dosage: 2 MILLIGRAM DAILY;
     Route: 062
     Dates: start: 20190108
  24. MORPHINE HYDROCHLORIDE [Concomitant]
     Active Substance: MORPHINE HYDROCHLORIDE
     Indication: Tumour pain
     Dosage: 5 MG, UNKNOWN FREQ. (AT THE PAIN)
     Route: 048
     Dates: start: 20190206
  25. HEPARIN SODIUM [Concomitant]
     Active Substance: HEPARIN SODIUM
     Indication: Thrombosis prophylaxis
     Dosage: 1000 - 2000 UNITS, ONCE DAILY
     Route: 041
     Dates: start: 20190127, end: 20190207
  26. GANCICLOVIR [Concomitant]
     Active Substance: GANCICLOVIR
     Indication: Cytomegalovirus infection
     Dosage: 500 MILLIGRAM DAILY;
     Route: 041
     Dates: start: 20190201, end: 20190207
  27. HUMULIN R [Concomitant]
     Active Substance: INSULIN HUMAN
     Indication: Diabetes mellitus
     Dosage: 4 IU, UNKNOWN FREQ. (DOSE INTERVAL UNCERTAINITY)
     Route: 041
     Dates: start: 20190204, end: 20190207

REACTIONS (3)
  - Klebsiella sepsis [Recovered/Resolved]
  - White blood cell count decreased [Recovered/Resolved]
  - Neutrophil count decreased [Recovered/Resolved]

NARRATIVE: CASE EVENT DATE: 20190207
